FAERS Safety Report 18013447 (Version 1)
Quarter: 2020Q3

REPORT INFORMATION
  Report Type: Spontaneous
  Country: AU (occurrence: AU)
  Receive Date: 20200710
  Receipt Date: 20200710
  Transmission Date: 20201103
  Serious: Yes (Other)
  Sender: FDA-Public Use
  Company Number: None

PATIENT
  Age: 41 Year
  Sex: Female
  Weight: 52 kg

DRUGS (6)
  1. OCREVUS [Suspect]
     Active Substance: OCRELIZUMAB
     Indication: MULTIPLE SCLEROSIS
     Dates: start: 20200225, end: 20200710
  2. BACLOFEN. [Concomitant]
     Active Substance: BACLOFEN
  3. PREGABALIN. [Concomitant]
     Active Substance: PREGABALIN
  4. AMITRIPTYLINE [Concomitant]
     Active Substance: AMITRIPTYLINE
  5. IBUPROFEN. [Concomitant]
     Active Substance: IBUPROFEN
  6. PANADOL [Concomitant]
     Active Substance: ACETAMINOPHEN

REACTIONS (6)
  - Alopecia [None]
  - Muscle spasms [None]
  - Diarrhoea [None]
  - Decreased appetite [None]
  - Nausea [None]
  - Pain [None]

NARRATIVE: CASE EVENT DATE: 20200225
